FAERS Safety Report 7572814-0 (Version None)
Quarter: 2011Q2

REPORT INFORMATION
  Report Type: 
  Country: None (occurrence: None)
  Receive Date: 20110627
  Receipt Date: 20110624
  Transmission Date: 20111010
  Serious: No
  Sender: FDA-Public Use
  Company Number: US-PFIZER INC-2011141241

PATIENT
  Sex: Female
  Weight: 80.726 kg

DRUGS (4)
  1. OXYCODONE [Concomitant]
     Dosage: UNK
  2. CHANTIX [Suspect]
     Indication: SMOKING CESSATION THERAPY
     Dosage: 0.5 MG, 1X/DAY
     Route: 048
     Dates: start: 20110501, end: 20110101
  3. CHANTIX [Suspect]
     Dosage: 1 MG, 2X/DAY
     Route: 048
     Dates: start: 20110101
  4. MULTI-VITAMINS [Concomitant]
     Dosage: UNK

REACTIONS (4)
  - EMOTIONAL DISORDER [None]
  - NAUSEA [None]
  - DRUG INEFFECTIVE [None]
  - IMPATIENCE [None]
